FAERS Safety Report 7713826-3 (Version None)
Quarter: 2011Q3

REPORT INFORMATION
  Report Type: 
  Country: None (occurrence: None)
  Receive Date: 20110826
  Receipt Date: 20110822
  Transmission Date: 20111222
  Serious: Yes (Other)
  Sender: FDA-Public Use
  Company Number: CA-PFIZER INC-2011131354

PATIENT
  Age: 68 Year
  Sex: Female
  Weight: 79 kg

DRUGS (4)
  1. KETOROLAC [Concomitant]
     Indication: INFLAMMATION
  2. XALATAN [Suspect]
     Indication: GLAUCOMA
     Dosage: 1 GTT IN BOTH EYES, 1X/DAY
     Route: 047
  3. KETOROLAC [Concomitant]
     Indication: SWELLING
  4. KETOROLAC [Concomitant]
     Indication: PAIN
     Dosage: 1 GTT IN RIGHT EYE, 4X/DAY

REACTIONS (2)
  - CATARACT OPERATION [None]
  - EYE LASER SURGERY [None]
